FAERS Safety Report 18458957 (Version 2)
Quarter: 2020Q4

REPORT INFORMATION
  Report Type: Report from Study
  Country: US (occurrence: US)
  Receive Date: 20201103
  Receipt Date: 20201213
  Transmission Date: 20210114
  Serious: Yes (Other)
  Sender: FDA-Public Use
  Company Number: NVSC2020US288246

PATIENT
  Age: 69 Year
  Sex: Female

DRUGS (1)
  1. COSENTYX [Suspect]
     Active Substance: SECUKINUMAB
     Indication: PSORIASIS
     Dosage: 300 MG, QMO
     Route: 058

REACTIONS (6)
  - Ocular hyperaemia [Unknown]
  - Skin injury [Unknown]
  - Blister [Unknown]
  - Ulcerative keratitis [Unknown]
  - Psoriasis [Unknown]
  - Eye inflammation [Unknown]
